FAERS Safety Report 14294959 (Version 2)
Quarter: 2018Q4

REPORT INFORMATION
  Report Type: Spontaneous
  Country: FR (occurrence: FR)
  Receive Date: 20171218
  Receipt Date: 20181023
  Transmission Date: 20190204
  Serious: Yes (Other)
  Sender: FDA-Public Use
  Company Number: FR-MERCK KGAA-2037268

PATIENT
  Age: 60 Year
  Sex: Female

DRUGS (2)
  1. EUTHYROX [Suspect]
     Active Substance: LEVOTHYROXINE SODIUM
  2. EUTHYROX [Suspect]
     Active Substance: LEVOTHYROXINE SODIUM
     Indication: PRODUCT USED FOR UNKNOWN INDICATION
     Dates: start: 201705

REACTIONS (14)
  - Suicidal ideation [Recovered/Resolved]
  - Blood thyroid stimulating hormone decreased [None]
  - Fatigue [Recovered/Resolved]
  - Vertigo [None]
  - Psoriasis [None]
  - Dry skin [None]
  - Headache [None]
  - Pain in extremity [None]
  - Irritability [None]
  - Alopecia [None]
  - Arthralgia [None]
  - Anxiety [Recovered/Resolved]
  - Depression [Recovered/Resolved]
  - Loss of personal independence in daily activities [None]

NARRATIVE: CASE EVENT DATE: 2017
